FAERS Safety Report 7576856-0 (Version None)
Quarter: 2011Q2

REPORT INFORMATION
  Report Type: 
  Country: None (occurrence: None)
  Receive Date: 20110628
  Receipt Date: 20081001
  Transmission Date: 20111010
  Serious: Yes (Other)
  Sender: FDA-Public Use
  Company Number: US-BAYER-200836234NA

PATIENT
  Age: 56 Year
  Sex: Female
  Weight: 91 kg

DRUGS (20)
  1. VERSED [Concomitant]
     Dosage: UNK
     Route: 042
     Dates: start: 20060721
  2. PRILOSEC [Concomitant]
     Dosage: 20 MG, QD
     Route: 048
  3. CARVEDILOL [Concomitant]
     Dosage: 3.125 MG
     Route: 042
     Dates: start: 20060721
  4. REGULAR INSULIN [Concomitant]
     Dosage: 70 UNITS EVERY MORNING
     Route: 058
  5. NORVASC [Concomitant]
     Dosage: 5 MG, QD
     Route: 048
  6. TRASYLOL [Suspect]
     Indication: PRODUCT USED FOR UNKNOWN INDICATION
     Dosage: UNK
     Route: 042
     Dates: start: 20060721, end: 20060721
  7. RED BLOOD CELLS [Concomitant]
     Dosage: 2 U, ONCE
     Route: 042
     Dates: start: 20060730
  8. MONOPRIL [Concomitant]
     Dosage: 10 MG, QD
     Route: 048
  9. PLAVIX [Concomitant]
     Dosage: 75 MG, QD
     Route: 048
  10. ISORDIL [Concomitant]
     Dosage: 80 MG, TID
     Route: 048
  11. HESPAN IN EXCEL PLASTIC CONTAINER [Concomitant]
  12. PRIMACOR [Concomitant]
     Dosage: UNK
     Route: 042
     Dates: start: 20060730
  13. LASIX [Concomitant]
     Dosage: 40 MG, QD
     Route: 048
  14. ALBUMIN (HUMAN) [Concomitant]
     Route: 042
  15. CEFUROXIME [Concomitant]
     Dosage: 3 GRAMS
     Route: 042
     Dates: start: 20060721
  16. HEPARIN [Concomitant]
     Dosage: 25,000 UNITS
     Route: 042
     Dates: start: 20060721
  17. LEVOPHED [Concomitant]
  18. NITROGLYCERIN [Concomitant]
     Route: 060
  19. LANOXIN [Concomitant]
     Dosage: 0.5 MG, QD
     Route: 048
  20. CRESTOR [Concomitant]
     Dosage: 10 MG, QD
     Route: 048

REACTIONS (13)
  - EMOTIONAL DISTRESS [None]
  - STRESS [None]
  - ANXIETY [None]
  - COAGULOPATHY [None]
  - ANHEDONIA [None]
  - RENAL FAILURE [None]
  - FEAR [None]
  - PAIN [None]
  - CEREBROVASCULAR ACCIDENT [None]
  - INJURY [None]
  - MYOCARDIAL INFARCTION [None]
  - DEPRESSION [None]
  - UNEVALUABLE EVENT [None]
